FAERS Safety Report 16467916 (Version 1)
Quarter: 2019Q2

REPORT INFORMATION
  Report Type: Spontaneous
  Country: GB (occurrence: GB)
  Receive Date: 20190624
  Receipt Date: 20190624
  Transmission Date: 20190711
  Serious: Yes (Other)
  Sender: FDA-Public Use
  Company Number: GB-SA-2019SA161898

PATIENT
  Age: 69 Year
  Sex: Female
  Weight: 67.1 kg

DRUGS (10)
  1. ACETYLSALICYLIC ACID [Concomitant]
     Active Substance: ASPIRIN
     Dosage: 75 MG, QD
     Dates: start: 20170213
  2. LEFLUNOMIDE. [Suspect]
     Active Substance: LEFLUNOMIDE
     Dosage: 10 MG
  3. TRAMADOL. [Concomitant]
     Active Substance: TRAMADOL
     Dosage: TAKE ONE OR TWO AS DIRECTED
     Dates: start: 20170323
  4. NAPROXEN. [Concomitant]
     Active Substance: NAPROXEN
     Dosage: TAKE ONE OR TWO UP TO TWICE DAILY, BID
     Dates: start: 20160229
  5. SIMVASTATIN. [Concomitant]
     Active Substance: SIMVASTATIN
     Dosage: 20 MG, QD, EVERY NIGHT
     Dates: start: 20170213
  6. OMEPRAZOLE. [Concomitant]
     Active Substance: OMEPRAZOLE
     Dosage: 40 MG, QD
     Dates: start: 20170213
  7. RAMIPRIL. [Concomitant]
     Active Substance: RAMIPRIL
     Dosage: 10 MG, QD
     Dates: start: 20170213
  8. LEVOTHYROXINE. [Concomitant]
     Active Substance: LEVOTHYROXINE
     Dosage: 25 UG, QD
     Dates: start: 20170213
  9. FOLIC ACID. [Concomitant]
     Active Substance: FOLIC ACID
     Dosage: 30 MG, QW (TAKEN ONCE A DAY EXCEPT DAY METHOTREXATE IS TAKEN)
     Dates: start: 20170410
  10. AMITRIPTYLINE [Concomitant]
     Active Substance: AMITRIPTYLINE
     Dosage: 10 MG, QD
     Dates: start: 20160407

REACTIONS (3)
  - Hypertension [Unknown]
  - Palpitations [Unknown]
  - Heart rate increased [Unknown]

NARRATIVE: CASE EVENT DATE: 20170603
